FAERS Safety Report 15201597 (Version 1)
Quarter: 2018Q3

REPORT INFORMATION
  Report Type: Spontaneous
  Country: US (occurrence: US)
  Receive Date: 20180726
  Receipt Date: 20180726
  Transmission Date: 20181010
  Serious: No
  Sender: FDA-Public Use
  Company Number: US-ACCORD-059791

PATIENT
  Age: 55 Year
  Sex: Female

DRUGS (1)
  1. LETROZOLE. [Suspect]
     Active Substance: LETROZOLE
     Indication: BREAST CANCER
     Dosage: STRENGTH: 2.5 MG
     Route: 048
     Dates: start: 20170925

REACTIONS (7)
  - Night sweats [Unknown]
  - Nausea [Unknown]
  - Constipation [Unknown]
  - Abdominal discomfort [Unknown]
  - Dizziness [Unknown]
  - Palpitations [Unknown]
  - Insomnia [Unknown]
